FAERS Safety Report 7380466-8 (Version None)
Quarter: 2011Q1

REPORT INFORMATION
  Report Type: 
  Country: None (occurrence: None)
  Receive Date: 20110329
  Receipt Date: 20110324
  Transmission Date: 20110831
  Serious: Yes (Other)
  Sender: FDA-Public Use
  Company Number: US-PFIZER INC-2010105165

PATIENT
  Sex: Female
  Weight: 53.061 kg

DRUGS (8)
  1. PROTONIX [Suspect]
     Indication: OESOPHAGEAL DISORDER
     Dosage: 40 MG, 1X/DAY
     Route: 048
     Dates: start: 20070101, end: 20091101
  2. IRON [Concomitant]
     Dosage: UNK
  3. BENICAR [Concomitant]
  4. PROTONIX [Suspect]
     Indication: GASTROINTESTINAL HAEMORRHAGE
     Dosage: HALF A TABLET
     Route: 048
     Dates: start: 20091101
  5. METFORMIN HCL [Suspect]
     Dosage: UNK
  6. GLYBURIDE [Suspect]
     Indication: DIABETES MELLITUS
     Dosage: UNK
  7. AZITHROMYCIN [Suspect]
     Dosage: UNK
     Dates: start: 20090401
  8. NORVASC [Concomitant]

REACTIONS (10)
  - CHRONIC MYELOID LEUKAEMIA [None]
  - WEIGHT DECREASED [None]
  - DISCOMFORT [None]
  - ANAEMIA [None]
  - EPISTAXIS [None]
  - DRUG ADMINISTRATION ERROR [None]
  - BODY TEMPERATURE INCREASED [None]
  - GENERAL PHYSICAL HEALTH DETERIORATION [None]
  - DIABETES MELLITUS INADEQUATE CONTROL [None]
  - BLOOD IRON DECREASED [None]
